FAERS Safety Report 9324115 (Version 1)
Quarter: 2013Q2

REPORT INFORMATION
  Report Type: Spontaneous
  Country: GB (occurrence: GB)
  Receive Date: 20130603
  Receipt Date: 20130603
  Transmission Date: 20140414
  Serious: Yes (Disabling)
  Sender: FDA-Public Use
  Company Number: GB-TEVA-407984ISR

PATIENT
  Age: 70 Year
  Sex: Female
  Weight: 59.55 kg

DRUGS (10)
  1. AMITRIPTYLINE [Suspect]
     Dates: start: 20130501
  2. AMLODIPINE [Concomitant]
     Dates: start: 20130131, end: 20130404
  3. FLECAINIDE ACETATE [Concomitant]
     Dates: start: 20130219, end: 20130404
  4. SIMVASTATIN [Concomitant]
     Dates: start: 20130307, end: 20130404
  5. PARACETAMOL [Concomitant]
     Dates: start: 20130308, end: 20130320
  6. CODEINE PHOSPHATE [Concomitant]
     Dates: start: 20130308, end: 20130418
  7. CLOTRIMAZOLE [Concomitant]
     Dates: start: 20130311, end: 20130321
  8. DIHYDROCODEINE [Concomitant]
     Dates: start: 20130318, end: 20130502
  9. OMEPRAZOLE [Concomitant]
     Dates: start: 20130321, end: 20130410
  10. TRAMADOL [Concomitant]
     Dates: start: 20130501

REACTIONS (5)
  - Local swelling [Recovering/Resolving]
  - Arthralgia [Recovering/Resolving]
  - Dry mouth [Unknown]
  - Vision blurred [Unknown]
  - Pruritus [Unknown]
